FAERS Safety Report 15428021 (Version 1)
Quarter: 2018Q4

REPORT INFORMATION
  Report Type: Spontaneous
  Country: US (occurrence: US)
  Receive Date: 20180926
  Receipt Date: 20180926
  Transmission Date: 20190204
  Serious: Yes (Hospitalization)
  Sender: FDA-Public Use
  Company Number: US-PRINSTON PHARMACEUTICAL INC.-2018PRN00775

PATIENT
  Age: 73 Year
  Sex: Female

DRUGS (2)
  1. FLUID PILLS [Suspect]
     Active Substance: UNSPECIFIED INGREDIENT
  2. VALSARTAN. [Suspect]
     Active Substance: VALSARTAN
     Indication: HYPERTENSION
     Dosage: 320 MG, 1X/DAY
     Route: 048
     Dates: end: 201803

REACTIONS (5)
  - Blood pressure decreased [Unknown]
  - Blood pressure increased [Recovered/Resolved]
  - Renal impairment [Unknown]
  - Asthenia [Not Recovered/Not Resolved]
  - Blood potassium increased [Unknown]

NARRATIVE: CASE EVENT DATE: 201803
